FAERS Safety Report 5200525-5 (Version None)
Quarter: 2006Q4

REPORT INFORMATION
  Report Type: 
  Country: None (occurrence: None)
  Receive Date: 20061016
  Receipt Date: 20060801
  Transmission Date: 20070319
  Serious: No
  Sender: FDA-Public Use
  Company Number: 2006SP002866

PATIENT
  Age: 64 Year
  Sex: Female
  Weight: 65.7716 kg

DRUGS (2)
  1. LUNESTA [Suspect]
     Indication: INSOMNIA
     Dosage: 3 MG;;UNKNOWN;ORAL
     Route: 048
     Dates: start: 20060101
  2. CYMBALTA [Concomitant]

REACTIONS (1)
  - DRUG EFFECT DECREASED [None]
